FAERS Safety Report 21142728 (Version 1)
Quarter: 2022Q3

REPORT INFORMATION
  Report Type: Spontaneous
  Country: CN (occurrence: None)
  Receive Date: 20220728
  Receipt Date: 20220728
  Transmission Date: 20221026
  Serious: Yes (Other)
  Sender: FDA-Public Use
  Company Number: 2022A266034

PATIENT
  Sex: Female

DRUGS (1)
  1. SEROQUEL [Suspect]
     Active Substance: QUETIAPINE FUMARATE
     Dosage: QUARTER OF A TABLET EVERY NIGHT
     Route: 048

REACTIONS (8)
  - Dizziness [Unknown]
  - Gait disturbance [Unknown]
  - Asthenia [Unknown]
  - Vomiting [Unknown]
  - Product availability issue [Unknown]
  - Product taste abnormal [Unknown]
  - Nausea [Unknown]
  - Product odour abnormal [Unknown]
